FAERS Safety Report 9441480 (Version 4)
Quarter: 2013Q3

REPORT INFORMATION
  Report Type: Spontaneous
  Country: JP (occurrence: JP)
  Receive Date: 20130805
  Receipt Date: 20130830
  Transmission Date: 20140515
  Serious: Yes (Hospitalization, Other)
  Sender: FDA-Public Use
  Company Number: JP-PFIZER INC-2013225447

PATIENT
  Age: 74 Year
  Sex: Female

DRUGS (7)
  1. CABASER [Suspect]
     Indication: PARKINSON^S DISEASE
     Dosage: 2 MG, DAILY
     Route: 048
  2. ARTANE [Suspect]
     Indication: PARKINSON^S DISEASE
     Dosage: UNK
     Route: 048
     Dates: end: 2013
  3. LIPITOR [Suspect]
     Indication: HYPERCHOLESTEROLAEMIA
     Dosage: 10 MG, DAILY
     Route: 048
     Dates: end: 20130725
  4. MADOPAR [Suspect]
     Indication: PARKINSON^S DISEASE
     Dosage: 2 TABLETS DAILY
     Route: 048
  5. FP [Suspect]
     Indication: PARKINSON^S DISEASE
     Dosage: 2.5 MG, 1X/DAY
     Route: 048
  6. TRIPHEDINON [Concomitant]
     Dosage: UNK
     Dates: end: 20130725
  7. REBAMIPIDE [Concomitant]
     Dosage: UNK
     Route: 048
     Dates: end: 20130725

REACTIONS (4)
  - Ileus paralytic [Recovered/Resolved]
  - Altered state of consciousness [Recovering/Resolving]
  - Dehydration [Recovering/Resolving]
  - Renal impairment [Recovering/Resolving]
